FAERS Safety Report 16973641 (Version 2)
Quarter: 2022Q2

REPORT INFORMATION
  Report Type: Spontaneous
  Country: BR (occurrence: None)
  Receive Date: 20191030
  Receipt Date: 20220629
  Transmission Date: 20220721
  Serious: Yes (Other)
  Sender: FDA-Public Use
  Company Number: BR-ROCHE-2334213

PATIENT
  Age: 50 Year
  Sex: Female
  Weight: 70 kg

DRUGS (9)
  1. HERCEPTIN [Suspect]
     Active Substance: TRASTUZUMAB
     Indication: Breast cancer
     Route: 065
  2. PERJETA [Suspect]
     Active Substance: PERTUZUMAB
     Indication: Breast cancer
     Route: 042
     Dates: start: 20190408
  3. PERJETA [Suspect]
     Active Substance: PERTUZUMAB
     Route: 042
     Dates: start: 20190318
  4. TAXOL [Suspect]
     Active Substance: PACLITAXEL
     Indication: Breast cancer
     Route: 065
  5. ANASTROZOLE [Suspect]
     Active Substance: ANASTROZOLE
     Indication: Breast cancer
     Route: 065
  6. TAMOXIFEN [Suspect]
     Active Substance: TAMOXIFEN
     Indication: Breast cancer
     Route: 065
  7. PREDNISONE [Concomitant]
     Active Substance: PREDNISONE
  8. CETIRIZINE [Concomitant]
     Active Substance: CETIRIZINE HYDROCHLORIDE
  9. BETAMETHASONE DIPROPIONATE\GENTAMICIN SULFATE [Concomitant]
     Active Substance: BETAMETHASONE DIPROPIONATE\GENTAMICIN SULFATE

REACTIONS (2)
  - Folliculitis [Recovering/Resolving]
  - Gastritis [Recovered/Resolved]

NARRATIVE: CASE EVENT DATE: 20190401
